FAERS Safety Report 8541416-1 (Version None)
Quarter: 2012Q3

REPORT INFORMATION
  Report Type: 
  Country: None (occurrence: None)
  Receive Date: 20120726
  Receipt Date: 20120716
  Transmission Date: 20120928
  Serious: Yes (Other)
  Sender: FDA-Public Use
  Company Number: US-PURDUE-USA-2012-0089994

PATIENT
  Age: 65 Year
  Sex: Female

DRUGS (2)
  1. OXYCODONE HCL [Concomitant]
     Indication: PAIN
     Dosage: 15 MG, PRN
  2. OXYCONTIN [Suspect]
     Indication: PAIN
     Dosage: 40 MG, Q12H

REACTIONS (6)
  - BALANCE DISORDER [None]
  - FALL [None]
  - FACIAL BONES FRACTURE [None]
  - PHOTOSENSITIVITY REACTION [None]
  - MIGRAINE [None]
  - VOMITING [None]
